FAERS Safety Report 5884869-X (Version None)
Quarter: 2008Q3

REPORT INFORMATION
  Report Type: 
  Country: None (occurrence: None)
  Receive Date: 20080916
  Receipt Date: 20080711
  Transmission Date: 20090109
  Serious: No
  Sender: FDA-Public Use
  Company Number: US-BAYER-200828775NA

PATIENT
  Age: 16 Year
  Sex: Female
  Weight: 77 kg

DRUGS (2)
  1. YAZ [Suspect]
     Indication: CONTRACEPTION
     Route: 048
     Dates: start: 20080707, end: 20080707
  2. YAZ [Suspect]
     Route: 048
     Dates: start: 20080628, end: 20080707

REACTIONS (4)
  - DIZZINESS [None]
  - METRORRHAGIA [None]
  - NAUSEA [None]
  - NO ADVERSE EVENT [None]
